FAERS Safety Report 20744187 (Version 3)
Quarter: 2022Q3

REPORT INFORMATION
  Report Type: Report from Study
  Country: US (occurrence: None)
  Receive Date: 20220425
  Receipt Date: 20220704
  Transmission Date: 20221027
  Serious: Yes (Life-Threatening, Hospitalization)
  Sender: FDA-Public Use
  Company Number: US-ROCHE-3073299

PATIENT
  Age: 56 Year
  Sex: Female
  Weight: 111.1 kg

DRUGS (31)
  1. OBINUTUZUMAB [Suspect]
     Active Substance: OBINUTUZUMAB
     Indication: Chronic lymphocytic leukaemia
     Dosage: THE START DATE OF MOST RECENT DOSE OF OBINUTUZUMAB (100 MG) PRIOR TO AE ONSET: 07/APR/2022.
     Route: 042
     Dates: start: 20220407
  2. HYDROCHLOROTHIAZIDE [Concomitant]
     Active Substance: HYDROCHLOROTHIAZIDE
     Indication: Hypertension
     Route: 048
     Dates: start: 1987
  3. LOSARTAN [Concomitant]
     Active Substance: LOSARTAN
     Indication: Hypertension
     Route: 048
     Dates: start: 1987
  4. VITAMIN D3 [Concomitant]
     Active Substance: CHOLECALCIFEROL
     Route: 048
     Dates: start: 2020
  5. ASPIRIN [Concomitant]
     Active Substance: ASPIRIN
     Route: 048
     Dates: start: 20220317
  6. FERROUS SULFATE [Concomitant]
     Active Substance: FERROUS SULFATE
     Indication: Anaemia
     Route: 048
     Dates: start: 1986
  7. MELOXICAM [Concomitant]
     Active Substance: MELOXICAM
     Route: 048
  8. GLUCOSAMINE [Concomitant]
     Active Substance: GLUCOSAMINE
     Route: 048
     Dates: start: 2020
  9. KRILL OIL [Concomitant]
     Active Substance: DIETARY SUPPLEMENT\KRILL OIL
     Route: 048
     Dates: start: 2020
  10. POTASSIUM GLUCONATE [Concomitant]
     Active Substance: POTASSIUM GLUCONATE
     Route: 048
     Dates: start: 2020
  11. PROPRANOLOL HYDROCHLORIDE [Concomitant]
     Active Substance: PROPRANOLOL HYDROCHLORIDE
     Route: 048
     Dates: start: 1987
  12. BIOTIN [Concomitant]
     Active Substance: BIOTIN
     Route: 048
     Dates: start: 2020
  13. MAGNESIUM OXIDE [Concomitant]
     Active Substance: MAGNESIUM OXIDE
     Route: 048
     Dates: start: 2020
  14. ZINC [Concomitant]
     Active Substance: ZINC
     Route: 048
     Dates: start: 2020
  15. ALLOPURINOL [Concomitant]
     Active Substance: ALLOPURINOL
     Indication: Blood uric acid increased
     Route: 048
     Dates: start: 20220406
  16. RASBURICASE [Concomitant]
     Active Substance: RASBURICASE
     Indication: Blood uric acid increased
     Route: 042
     Dates: start: 20220407
  17. DIPHENHYDRAMINE [Concomitant]
     Active Substance: DIPHENHYDRAMINE
     Route: 042
     Dates: start: 20220407
  18. DIPHENHYDRAMINE [Concomitant]
     Active Substance: DIPHENHYDRAMINE
     Route: 042
     Dates: start: 20220407, end: 20220407
  19. HYDROCORTISONE [Concomitant]
     Active Substance: HYDROCORTISONE
     Route: 042
     Dates: start: 20220407, end: 20220407
  20. HYDROCORTISONE [Concomitant]
     Active Substance: HYDROCORTISONE
     Route: 042
     Dates: start: 20220407, end: 20220407
  21. GRANISETRON [Concomitant]
     Active Substance: GRANISETRON
     Indication: Nausea
     Route: 042
     Dates: start: 20220407, end: 20220407
  22. GRANISETRON [Concomitant]
     Active Substance: GRANISETRON
     Indication: Vomiting
     Route: 042
     Dates: start: 20220407, end: 20220407
  23. FAMOTIDINE [Concomitant]
     Active Substance: FAMOTIDINE
     Indication: Nausea
     Route: 042
     Dates: start: 20220407, end: 20220407
  24. FAMOTIDINE [Concomitant]
     Active Substance: FAMOTIDINE
     Indication: Vomiting
  25. COVID-19 VACCINE [Concomitant]
     Dates: start: 20210910
  26. DOCUSATE SODIUM [Concomitant]
     Active Substance: DOCUSATE SODIUM
     Route: 048
     Dates: start: 1990
  27. IOPAMIDOL [Concomitant]
     Active Substance: IOPAMIDOL
     Route: 042
     Dates: start: 20220407, end: 20220407
  28. CEFTRIAXONE [Concomitant]
     Active Substance: CEFTRIAXONE
     Route: 042
     Dates: start: 20220408
  29. ACETAMINOPHEN [Concomitant]
     Active Substance: ACETAMINOPHEN
     Route: 048
     Dates: start: 20220407, end: 20220407
  30. SODIUM CHLORIDE [Concomitant]
     Active Substance: SODIUM CHLORIDE
     Route: 042
     Dates: start: 20220407, end: 20220408
  31. DEXAMETHASONE [Concomitant]
     Active Substance: DEXAMETHASONE
     Route: 042
     Dates: start: 20220419, end: 20220419

REACTIONS (1)
  - Pulmonary embolism [Recovered/Resolved]

NARRATIVE: CASE EVENT DATE: 20220407
